FAERS Safety Report 22160742 (Version 1)
Quarter: 2023Q1

REPORT INFORMATION
  Report Type: Spontaneous
  Country: US (occurrence: US)
  Receive Date: 20230331
  Receipt Date: 20230331
  Transmission Date: 20230418
  Serious: No
  Sender: FDA-Public Use
  Company Number: US-PFIZER INC-202300136290

PATIENT
  Age: 11 Year
  Sex: Male
  Weight: 28.12 kg

DRUGS (1)
  1. GENOTROPIN [Suspect]
     Active Substance: SOMATROPIN
     Dosage: 1.4 MG (SIX DAYS A WEEK DAILY)
     Route: 058

REACTIONS (1)
  - Injection site pain [Unknown]
